FAERS Safety Report 6089200-5 (Version None)
Quarter: 2009Q1

REPORT INFORMATION
  Report Type: 
  Country: None (occurrence: None)
  Receive Date: 20090224
  Receipt Date: 20090130
  Transmission Date: 20090719
  Serious: Yes (Death)
  Sender: FDA-Public Use
  Company Number: US-TYCO HEALTHCARE/MALLINCKRODT-T200900245

PATIENT
  Age: 20 Year
  Sex: Male

DRUGS (3)
  1. OXYCODONE [Suspect]
     Dosage: UNK
  2. ALPRAZOLAM [Suspect]
  3. DIAZEPAM [Suspect]

REACTIONS (2)
  - CARDIO-RESPIRATORY ARREST [None]
  - COMPLETED SUICIDE [None]
